FAERS Safety Report 9880488 (Version 1)
Quarter: 2014Q1

REPORT INFORMATION
  Report Type: Spontaneous
  Country: US (occurrence: None)
  Receive Date: 20140206
  Receipt Date: 20140206
  Transmission Date: 20141002
  Serious: Yes (Hospitalization, Disabling)
  Sender: FDA-Public Use
  Company Number: None

PATIENT
  Sex: 0

DRUGS (3)
  1. HALDOL [Suspect]
  2. CENTRUM ONE A DAY [Concomitant]
  3. POTASSIUM [Concomitant]

REACTIONS (3)
  - Disturbance in attention [None]
  - Vision blurred [None]
  - Tearfulness [None]
